FAERS Safety Report 4584724-1 (Version None)
Quarter: 2005Q1

REPORT INFORMATION
  Report Type: 
  Country: None (occurrence: None)
  Receive Date: 20050211
  Receipt Date: 20050203
  Transmission Date: 20050727
  Serious: Yes (Death)
  Sender: FDA-Public Use
  Company Number: HQWYE088003FEB05

PATIENT
  Age: 51 Year
  Sex: Male

DRUGS (9)
  1. OROKEN (CEFIXIME, TABLET) [Suspect]
     Indication: URINARY TRACT INFECTION PSEUDOMONAL
     Dosage: 200 MG 2X PER 1 DAY ORAL
     Route: 048
     Dates: start: 20041207
  2. LASILIX (FUROSEMIDE,) [Suspect]
     Dosage: ORAL
     Route: 048
     Dates: start: 20040510, end: 20041213
  3. OFLOCET (OFLOXACIN, ) [Suspect]
     Indication: URINARY TRACT INFECTION ENTEROCOCCAL
     Dosage: 200 MG DAILY ORAL
     Route: 048
     Dates: start: 20041207
  4. OFLOCET (OFLOXACIN, ) [Suspect]
     Indication: URINARY TRACT INFECTION PSEUDOMONAL
     Dosage: 200 MG DAILY ORAL
     Route: 048
     Dates: start: 20041207
  5. SOLU-MEDROL [Concomitant]
  6. PREVISCAN (FLUINDIONE) [Concomitant]
  7. MODAMIDE (AMILORIDE HYDROCHLORIDE) [Concomitant]
  8. MEDROL [Concomitant]
  9. FERROUS SULFATE TAB [Concomitant]

REACTIONS (3)
  - RENAL VEIN THROMBOSIS [None]
  - THROMBOCYTOPENIA [None]
  - VENA CAVA THROMBOSIS [None]
